FAERS Safety Report 4537196-7 (Version None)
Quarter: 2004Q4

REPORT INFORMATION
  Report Type: 
  Country: None (occurrence: None)
  Receive Date: 20041223
  Receipt Date: 20041206
  Transmission Date: 20050328
  Serious: Yes (Other)
  Sender: FDA-Public Use
  Company Number: PHEH2004US13049

PATIENT
  Age: 7 Year
  Sex: 0

DRUGS (1)
  1. RITALIN LA [Suspect]
     Indication: ATTENTION DEFICIT/HYPERACTIVITY DISORDER
     Dosage: 20 MG, QD
     Dates: start: 20041018

REACTIONS (1)
  - LOSS OF CONSCIOUSNESS [None]
